FAERS Safety Report 16414958 (Version 5)
Quarter: 2019Q3

REPORT INFORMATION
  Report Type: Report from Study
  Country: US (occurrence: US)
  Receive Date: 20190611
  Receipt Date: 20190902
  Transmission Date: 20191004
  Serious: Yes (Hospitalization, Other)
  Sender: FDA-Public Use
  Company Number: US-PFIZER INC-2019103956

PATIENT
  Age: 85 Year
  Sex: Female

DRUGS (3)
  1. SUTENT [Suspect]
     Active Substance: SUNITINIB MALATE
     Indication: RENAL CELL CARCINOMA
     Dosage: 50 MG, CYCLIC (4 WEEKS ON, 2 WEEKS OFF)
     Route: 048
     Dates: start: 20190224, end: 20190227
  2. SUTENT [Suspect]
     Active Substance: SUNITINIB MALATE
     Dosage: 50 MG, CYCLIC (4 WEEKS ON, 2 WEEKS OFF/1 DAY ON AND 2 DAYS OFF)
     Dates: start: 20190317, end: 20190321
  3. SUTENT [Suspect]
     Active Substance: SUNITINIB MALATE
     Dosage: 50 MG, CYCLIC (ONCE DAILY FOR 2 DAYS ON, 2 DAYS OFF)
     Route: 048
     Dates: start: 20190224, end: 20190812

REACTIONS (10)
  - Pneumonia [Unknown]
  - Wound [Not Recovered/Not Resolved]
  - Impaired healing [Not Recovered/Not Resolved]
  - Upper respiratory tract infection [Unknown]
  - Dehydration [Unknown]
  - Haematemesis [Unknown]
  - Decreased appetite [Unknown]
  - Pain [Not Recovered/Not Resolved]
  - Skin lesion [Unknown]
  - Epistaxis [Recovered/Resolved]

NARRATIVE: CASE EVENT DATE: 2019
